FAERS Safety Report 7626448-X (Version None)
Quarter: 2011Q3

REPORT INFORMATION
  Report Type: 
  Country: None (occurrence: None)
  Receive Date: 20110721
  Receipt Date: 20110718
  Transmission Date: 20111222
  Serious: Yes (Other)
  Sender: FDA-Public Use
  Company Number: IL-PFIZER INC-2011161512

PATIENT
  Age: 83 Year
  Sex: Male

DRUGS (1)
  1. TOLTERODINE TARTRATE [Suspect]

REACTIONS (3)
  - CONSTIPATION [None]
  - VISION BLURRED [None]
  - MEMORY IMPAIRMENT [None]
